FAERS Safety Report 21471421 (Version 1)
Quarter: 2022Q4

REPORT INFORMATION
  Report Type: Spontaneous
  Country: US (occurrence: None)
  Receive Date: 20221017
  Receipt Date: 20221017
  Transmission Date: 20230112
  Serious: Yes (Hospitalization, Disabling)
  Sender: FDA-Public Use
  Company Number: None

PATIENT
  Age: 46 Year
  Sex: Female
  Weight: 63 kg

DRUGS (3)
  1. OCREVUS [Suspect]
     Active Substance: OCRELIZUMAB
     Indication: Multiple sclerosis
     Dates: start: 20220601, end: 20220601
  2. VITAMIN D [Concomitant]
     Active Substance: VITAMIN D NOS
  3. MAGNESIUM [Concomitant]

REACTIONS (8)
  - Infusion related reaction [None]
  - Dyspnoea [None]
  - Anxiety [None]
  - Dizziness [None]
  - Vertigo [None]
  - Heart rate increased [None]
  - Balance disorder [None]
  - Multiple sclerosis relapse [None]

NARRATIVE: CASE EVENT DATE: 20220601
